FAERS Safety Report 7054134-6 (Version None)
Quarter: 2010Q4

REPORT INFORMATION
  Report Type: 
  Country: None (occurrence: None)
  Receive Date: 20101015
  Receipt Date: 20101008
  Transmission Date: 20110411
  Serious: Yes (Death)
  Sender: FDA-Public Use
  Company Number: 020017

PATIENT
  Sex: Female
  Weight: 45 kg

DRUGS (3)
  1. LEVETIRACETAM [Suspect]
     Indication: CONVULSION
     Dosage: SEE IMAGE
     Route: 042
     Dates: start: 20100910, end: 20100913
  2. LEVETIRACETAM [Suspect]
     Indication: CONVULSION
     Dosage: SEE IMAGE
     Route: 042
     Dates: start: 20100913, end: 20101003
  3. GEFITINIB [Concomitant]

REACTIONS (3)
  - METASTASES TO BONE [None]
  - METASTASES TO CENTRAL NERVOUS SYSTEM [None]
  - OXYGEN SATURATION DECREASED [None]
